FAERS Safety Report 4499745-7 (Version None)
Quarter: 2004Q4

REPORT INFORMATION
  Report Type: 
  Country: None (occurrence: None)
  Receive Date: 20041108
  Receipt Date: 20041025
  Transmission Date: 20050328
  Serious: Yes (Death, Other)
  Sender: FDA-Public Use
  Company Number: 2004087302

PATIENT
  Age: 46 Year
  Sex: Female

DRUGS (3)
  1. GEODON [Suspect]
     Indication: ILL-DEFINED DISORDER
     Dosage: 80 MG (40 MG, 2 IN 1 D)
     Dates: end: 20040101
  2. BACTRIM [Suspect]
     Indication: ILL-DEFINED DISORDER
     Dates: start: 20040701, end: 20040101
  3. AMLODIPINE BESYLATE [Concomitant]

REACTIONS (7)
  - APHAGIA [None]
  - APHASIA [None]
  - DEMENTIA [None]
  - DEPRESSION [None]
  - MYOCARDIAL INFARCTION [None]
  - NEUROMYOPATHY [None]
  - PSYCHOTIC DISORDER [None]
